FAERS Safety Report 24166290 (Version 1)
Quarter: 2024Q3

REPORT INFORMATION
  Report Type: Spontaneous
  Country: DE (occurrence: DE)
  Receive Date: 20240802
  Receipt Date: 20240802
  Transmission Date: 20241016
  Serious: Yes (Other)
  Sender: AMGEN
  Company Number: DE-AMGEN-DEUSP2024150122

PATIENT
  Sex: Male

DRUGS (1)
  1. XGEVA [Suspect]
     Active Substance: DENOSUMAB
     Indication: Plasma cell myeloma
     Dosage: UNK UNK, UNK
     Route: 065
     Dates: end: 2022

REACTIONS (6)
  - Plasma cell myeloma [Unknown]
  - Spinal disorder [Unknown]
  - Tooth discolouration [Unknown]
  - Tooth fracture [Unknown]
  - Tooth loss [Unknown]
  - Complication associated with device [Unknown]
